FAERS Safety Report 23639879 (Version 2)
Quarter: 2024Q1

REPORT INFORMATION
  Report Type: Report from Study
  Country: JP (occurrence: JP)
  Receive Date: 20240316
  Receipt Date: 20240326
  Transmission Date: 20240409
  Serious: Yes (Hospitalization, Other)
  Sender: FDA-Public Use
  Company Number: JP-INSMED, INC.-2024-00998-JP

PATIENT
  Age: 77 Year
  Sex: Female

DRUGS (1)
  1. ARIKAYCE [Suspect]
     Active Substance: AMIKACIN
     Indication: Product used for unknown indication
     Dosage: UNK
     Route: 055
     Dates: start: 20230911

REACTIONS (3)
  - Mycobacterium avium complex infection [Unknown]
  - Incorrect dose administered [Unknown]
  - Device delivery system issue [Unknown]
